FAERS Safety Report 19307475 (Version 1)
Quarter: 2021Q2

REPORT INFORMATION
  Report Type: Spontaneous
  Country: US (occurrence: US)
  Receive Date: 20210526
  Receipt Date: 20210526
  Transmission Date: 20210717
  Serious: Yes (Other)
  Sender: FDA-Public Use
  Company Number: US-PFIZER INC-2020043102

PATIENT
  Age: 70 Year
  Sex: Female

DRUGS (1)
  1. XELJANZ [Suspect]
     Active Substance: TOFACITINIB CITRATE
     Indication: DERMATOMYOSITIS
     Dosage: 5 MG

REACTIONS (5)
  - Off label use [Unknown]
  - Limb discomfort [Unknown]
  - Hypoacusis [Unknown]
  - Deep vein thrombosis [Unknown]
  - Drug effective for unapproved indication [Unknown]
